FAERS Safety Report 6241658-4 (Version None)
Quarter: 2009Q2

REPORT INFORMATION
  Report Type: 
  Country: None (occurrence: None)
  Receive Date: 20090623
  Receipt Date: 20061215
  Transmission Date: 20091009
  Serious: Yes (Other)
  Sender: FDA-Public Use
  Company Number: DE-ROCHE-475410

PATIENT
  Age: 52 Year
  Sex: Male

DRUGS (6)
  1. ENFUVIRTIDE [Interacting]
     Dosage: DISCONTINUED FOR 6 WEEKS
     Route: 065
     Dates: start: 20040201
  2. ENFUVIRTIDE [Interacting]
     Route: 065
  3. ZIDOVUDINE [Suspect]
     Route: 065
  4. LAMIVUDINE [Suspect]
     Route: 065
  5. TIPRANAVIR [Interacting]
     Route: 065
     Dates: start: 20050201
  6. RITONAVIR [Suspect]
     Route: 065
     Dates: start: 20050201

REACTIONS (4)
  - DRUG INTERACTION [None]
  - HEPATOTOXICITY [None]
  - SKIN REACTION [None]
  - WEIGHT DECREASED [None]
